FAERS Safety Report 9293677 (Version 3)
Quarter: 2013Q3

REPORT INFORMATION
  Report Type: Spontaneous
  Country: US (occurrence: US)
  Receive Date: 20130516
  Receipt Date: 20130701
  Transmission Date: 20140515
  Serious: Yes (Hospitalization)
  Sender: FDA-Public Use
  Company Number: US-BAXTER-2013BAX018337

PATIENT
  Age: 62 Year
  Sex: Male
  Weight: 120.31 kg

DRUGS (7)
  1. GAMMAGARD LIQUID [Suspect]
     Indication: IMMUNE THROMBOCYTOPENIC PURPURA
     Route: 042
     Dates: start: 20130509, end: 20130509
  2. PROMACTA [Suspect]
     Indication: IMMUNE THROMBOCYTOPENIC PURPURA
     Dates: start: 20130507
  3. NORCO [Concomitant]
     Indication: PAIN
     Dosage: 10-325
     Route: 048
     Dates: start: 20111101
  4. PREDNISONE [Concomitant]
     Indication: IMMUNE THROMBOCYTOPENIC PURPURA
     Route: 048
     Dates: start: 20130108, end: 20130108
  5. INSULIN ASPART [Concomitant]
     Indication: TYPE 2 DIABETES MELLITUS
     Route: 058
  6. FUROSEMIDE [Concomitant]
     Indication: HYPERTENSION
     Route: 048
  7. DOCUSATE [Concomitant]
     Indication: CONSTIPATION
     Route: 048

REACTIONS (1)
  - Wound haemorrhage [Recovered/Resolved]
